FAERS Safety Report 8264667-2 (Version None)
Quarter: 2012Q2

REPORT INFORMATION
  Report Type: 
  Country: None (occurrence: None)
  Receive Date: 20120406
  Receipt Date: 20120328
  Transmission Date: 20120825
  Serious: Yes (Life-Threatening)
  Sender: FDA-Public Use
  Company Number: CO-SANOFI-AVENTIS-2012SA022012

PATIENT
  Sex: Male

DRUGS (2)
  1. APIDRA [Suspect]
     Route: 065
  2. LANTUS [Suspect]
     Route: 065

REACTIONS (2)
  - ACUTE MYOCARDIAL INFARCTION [None]
  - HYPOGLYCAEMIC COMA [None]
